FAERS Safety Report 9083926 (Version 1)
Quarter: 2013Q1

REPORT INFORMATION
  Report Type: Spontaneous
  Country: CN (occurrence: CN)
  Receive Date: 20130131
  Receipt Date: 20130131
  Transmission Date: 20140127
  Serious: Yes (Other)
  Sender: FDA-Public Use
  Company Number: CN-ASTRAZENECA-2013SE04523

PATIENT
  Age: 70 Year
  Sex: Female

DRUGS (6)
  1. CRESTOR [Suspect]
     Indication: BLOOD CHOLESTEROL INCREASED
     Route: 048
     Dates: start: 201208
  2. CRESTOR [Suspect]
     Indication: BLOOD CHOLESTEROL INCREASED
     Dosage: 10 MG/ TWO DAY
     Route: 048
     Dates: start: 20120816
  3. LEVAAMLODIPINE BESLATE [Concomitant]
     Route: 048
  4. GINKGO LEAF [Concomitant]
     Route: 048
  5. PSEUDOEPHEDRINE [Concomitant]
     Indication: COUGH
     Dosage: THREE BOTTLES
     Route: 048
  6. PROPOLIS [Concomitant]
     Route: 048

REACTIONS (3)
  - Pancreatic carcinoma [Unknown]
  - Metastases to liver [Unknown]
  - Abdominal pain [Unknown]
